FAERS Safety Report 23986434 (Version 1)
Quarter: 2024Q2

REPORT INFORMATION
  Report Type: Spontaneous
  Country: GB (occurrence: None)
  Receive Date: 20240618
  Receipt Date: 20240618
  Transmission Date: 20240716
  Serious: Yes (Other)
  Sender: FDA-Public Use
  Company Number: 2024A134432

PATIENT
  Age: 78 Year
  Sex: Female
  Weight: 74 kg

DRUGS (12)
  1. BEVESPI AEROSPHERE [Suspect]
     Active Substance: FORMOTEROL FUMARATE\GLYCOPYRROLATE
     Route: 055
     Dates: start: 20240510
  2. LOSARTAN [Concomitant]
     Active Substance: LOSARTAN
     Dates: start: 20240312
  3. NAPROXEN [Concomitant]
     Active Substance: NAPROXEN
     Dates: start: 20240424, end: 20240501
  4. NYSTATIN [Concomitant]
     Active Substance: NYSTATIN
     Dosage: 4 - DAILY
     Dates: start: 20240519, end: 20240526
  5. SPIRIVA [Concomitant]
     Active Substance: TIOTROPIUM BROMIDE MONOHYDRATE
     Dosage: INHALE TWO DOSES ONCE DAILY
     Route: 055
     Dates: start: 20240519
  6. VENTOLIN [Concomitant]
     Active Substance: ALBUTEROL SULFATE
     Route: 055
     Dates: start: 20230717
  7. ADCAL [Concomitant]
     Dates: start: 20230912
  8. AMLODIPINE [Concomitant]
     Active Substance: AMLODIPINE BESYLATE
     Indication: Blood pressure measurement
     Dates: start: 20230912, end: 20240312
  9. SIMVASTATIN [Concomitant]
     Active Substance: SIMVASTATIN
     Indication: Blood cholesterol
     Dosage: AT NIGHT
     Dates: start: 20230912
  10. IBUPROFEN [Concomitant]
     Active Substance: IBUPROFEN
     Dosage: APPLY 3-4 TIMES/DAY
     Dates: start: 20230920
  11. LANSOPRAZOLE [Concomitant]
     Active Substance: LANSOPRAZOLE
     Dates: start: 20231027
  12. ACLIDINIUM BROMIDE\FORMOTEROL FUMARATE [Concomitant]
     Active Substance: ACLIDINIUM BROMIDE\FORMOTEROL FUMARATE
     Dates: start: 20240326, end: 20240510

REACTIONS (2)
  - Oral mucosal blistering [Recovered/Resolved]
  - Mouth ulceration [Recovered/Resolved]

NARRATIVE: CASE EVENT DATE: 20240607
